FAERS Safety Report 13349381 (Version 1)
Quarter: 2017Q1

REPORT INFORMATION
  Report Type: Report from Study
  Country: US (occurrence: US)
  Receive Date: 20170320
  Receipt Date: 20170320
  Transmission Date: 20170428
  Serious: No
  Sender: FDA-Public Use
  Company Number: US-AMGEN-USASL2017039037

PATIENT
  Age: 50 Year
  Sex: Female

DRUGS (1)
  1. ENBREL [Suspect]
     Active Substance: ETANERCEPT
     Indication: ANKYLOSING SPONDYLITIS
     Dosage: UNK
     Route: 065
     Dates: start: 20170310

REACTIONS (4)
  - Arthralgia [Unknown]
  - Diarrhoea [Unknown]
  - Feeling abnormal [Unknown]
  - Vomiting [Unknown]

NARRATIVE: CASE EVENT DATE: 20170310
